FAERS Safety Report 9772840 (Version 2)
Quarter: 2013Q4

REPORT INFORMATION
  Report Type: Spontaneous
  Country: GB (occurrence: GB)
  Receive Date: 20131219
  Receipt Date: 20131219
  Transmission Date: 20140711
  Serious: Yes (Other)
  Sender: FDA-Public Use
  Company Number: GB-PFIZER INC-2013313416

PATIENT
  Age: 45 Year
  Sex: Female
  Weight: 73 kg

DRUGS (2)
  1. TOVIAZ [Suspect]
     Indication: HYPERTONIC BLADDER
     Dosage: 8 MG, DAILY
     Route: 048
     Dates: start: 20131018, end: 20131028
  2. TOVIAZ [Suspect]
     Indication: STRESS URINARY INCONTINENCE

REACTIONS (3)
  - Ventricular extrasystoles [Recovered/Resolved]
  - Palpitations [Recovered/Resolved]
  - Constipation [Recovered/Resolved]
